FAERS Safety Report 24728135 (Version 2)
Quarter: 2025Q3

REPORT INFORMATION
  Report Type: Spontaneous
  Country: US (occurrence: US)
  Receive Date: 20241212
  Receipt Date: 20250917
  Transmission Date: 20251020
  Serious: No
  Sender: MYLAN
  Company Number: US-MYLANLABS-2024M1087916

PATIENT
  Weight: 121.11 kg

DRUGS (1)
  1. LYRICA [Suspect]
     Active Substance: PREGABALIN
     Indication: Occipital neuralgia
     Dosage: 50 MILLIGRAM, BID

REACTIONS (2)
  - Off label use [Unknown]
  - No adverse event [Recovered/Resolved]
